FAERS Safety Report 24401599 (Version 3)
Quarter: 2024Q4

REPORT INFORMATION
  Report Type: Report from Study
  Country: CA (occurrence: CA)
  Receive Date: 20241007
  Receipt Date: 20241018
  Transmission Date: 20250115
  Serious: Yes (Other)
  Sender: CSL BEHRING
  Company Number: CA-BEH-2024177438

PATIENT
  Age: 44 Year
  Sex: Female
  Weight: 70.4 kg

DRUGS (8)
  1. HIZENTRA [Suspect]
     Active Substance: HUMAN IMMUNOGLOBULIN G
     Indication: Myasthenia gravis
     Dosage: UNK UNK (PRODUCT STRENGTH: 16 G), QW
     Route: 065
     Dates: start: 20240812
  2. HIZENTRA [Suspect]
     Active Substance: HUMAN IMMUNOGLOBULIN G
     Indication: Off label use
     Dosage: UNK UNK (PRODUCT STRENGTH: 16 G), QW
     Route: 065
     Dates: start: 20240812
  3. HIZENTRA [Suspect]
     Active Substance: HUMAN IMMUNOGLOBULIN G
     Dosage: UNK UNK (PRODUCT STRENGTH: 16 G), QW
     Route: 065
     Dates: start: 20240812
  4. HIZENTRA [Suspect]
     Active Substance: HUMAN IMMUNOGLOBULIN G
     Dosage: UNK UNK (PRODUCT STRENGTH: 16 G), QW
     Route: 065
     Dates: start: 20240812
  5. HIZENTRA [Suspect]
     Active Substance: HUMAN IMMUNOGLOBULIN G
     Dosage: UNK
     Route: 065
     Dates: start: 20240920
  6. HIZENTRA [Suspect]
     Active Substance: HUMAN IMMUNOGLOBULIN G
     Dosage: UNK, QW (PRODUCT STRENGTH: 16 G)
     Route: 065
     Dates: start: 20240812
  7. HIZENTRA [Suspect]
     Active Substance: HUMAN IMMUNOGLOBULIN G
     Dosage: UNK, QW (PRODUCT STRENGTH: 16 G)
     Route: 065
     Dates: start: 20240812
  8. HIZENTRA [Suspect]
     Active Substance: HUMAN IMMUNOGLOBULIN G
     Dosage: UNK, QW (PRODUCT STRENGTH: 16 G)
     Route: 065
     Dates: start: 20240812

REACTIONS (27)
  - Depressed level of consciousness [Unknown]
  - Kidney infection [Recovered/Resolved]
  - Somnolence [Unknown]
  - Insomnia [Unknown]
  - Off label use [Unknown]
  - Sitting disability [Unknown]
  - Somnolence [Unknown]
  - Fatigue [Unknown]
  - Somnolence [Unknown]
  - Fatigue [Unknown]
  - Grip strength decreased [Unknown]
  - Nausea [Unknown]
  - Nausea [Unknown]
  - Vomiting [Unknown]
  - Muscular weakness [Recovering/Resolving]
  - Insomnia [Unknown]
  - Somnolence [Unknown]
  - Therapy interrupted [Unknown]
  - Therapy interrupted [Unknown]
  - Product supply issue [Unknown]
  - Malaise [Unknown]
  - Balance disorder [Unknown]
  - Somnolence [Unknown]
  - Asthenia [Recovering/Resolving]
  - Mobility decreased [Unknown]
  - Back pain [Recovered/Resolved]
  - Fatigue [Unknown]

NARRATIVE: CASE EVENT DATE: 20240801
